FAERS Safety Report 8597687-9 (Version None)
Quarter: 2012Q3

REPORT INFORMATION
  Report Type: 
  Country: None (occurrence: None)
  Receive Date: 20120803
  Receipt Date: 20120725
  Transmission Date: 20120928
  Serious: Yes (Hospitalization)
  Sender: FDA-Public Use
  Company Number: 1361752

PATIENT
  Age: 62 Year
  Sex: Male

DRUGS (1)
  1. MILRINONE LACTATE [Suspect]
     Indication: CARDIAC FAILURE CONGESTIVE
     Dates: start: 20120717

REACTIONS (3)
  - HYPOTENSION [None]
  - FATIGUE [None]
  - MEDICATION ERROR [None]
